FAERS Safety Report 4800867-9 (Version None)
Quarter: 2005Q4

REPORT INFORMATION
  Report Type: 
  Country: None (occurrence: None)
  Receive Date: 20051011
  Receipt Date: 20050926
  Transmission Date: 20060501
  Serious: Yes (Death, Hospitalization, Other)
  Sender: FDA-Public Use
  Company Number: 2005P1000425

PATIENT
  Age: 90 Year
  Sex: Female

DRUGS (3)
  1. NICARDIPINE HCL [Suspect]
     Indication: CARDIAC FAILURE ACUTE
     Dosage: 0.5 UG; IV
     Route: 042
     Dates: start: 20000612, end: 20000612
  2. FUROSEMIDE [Concomitant]
  3. ISOSORBIDE DINITRATE [Concomitant]

REACTIONS (4)
  - CARDIO-RESPIRATORY ARREST [None]
  - CHEST DISCOMFORT [None]
  - HYPOXIA [None]
  - PULMONARY OEDEMA [None]
